FAERS Safety Report 7200989-1 (Version None)
Quarter: 2010Q4

REPORT INFORMATION
  Report Type: 
  Country: None (occurrence: None)
  Receive Date: 20101228
  Receipt Date: 20101214
  Transmission Date: 20110411
  Serious: Yes (Other)
  Sender: FDA-Public Use
  Company Number: US-AMGEN-KDL435571

PATIENT

DRUGS (1)
  1. NPLATE [Suspect]
     Indication: IDIOPATHIC THROMBOCYTOPENIC PURPURA
     Dosage: 35 A?G/KG, UNK
     Dates: start: 20100224

REACTIONS (2)
  - HAEMATOLOGICAL MALIGNANCY [None]
  - SKIN LESION [None]
